FAERS Safety Report 9966488 (Version 2)
Quarter: 2014Q1

REPORT INFORMATION
  Report Type: Report from Study
  Country: US (occurrence: US)
  Receive Date: 20140305
  Receipt Date: 20140305
  Transmission Date: 20141002
  Serious: No
  Sender: FDA-Public Use
  Company Number: US-ABBVIE-13P-163-1103857-00

PATIENT
  Age: 52 Year
  Sex: Female

DRUGS (7)
  1. HUMIRA [Suspect]
     Indication: CROHN^S DISEASE
     Dates: start: 20130610
  2. HUMIRA [Suspect]
     Dates: start: 20130527, end: 20130527
  3. HUMIRA [Suspect]
     Dates: start: 20130513, end: 20130513
  4. PENTASA [Concomitant]
     Indication: CROHN^S DISEASE
  5. LEXAPRO [Concomitant]
     Indication: DEPRESSION
  6. VIVELLE DOT [Concomitant]
     Indication: PRODUCT USED FOR UNKNOWN INDICATION
  7. CALCIUM [Concomitant]
     Indication: PRODUCT USED FOR UNKNOWN INDICATION
     Dosage: DAILY
     Route: 048

REACTIONS (7)
  - Costochondritis [Not Recovered/Not Resolved]
  - Injection site rash [Not Recovered/Not Resolved]
  - Injection site pruritus [Not Recovered/Not Resolved]
  - Injection site pain [Not Recovered/Not Resolved]
  - Drug ineffective [Not Recovered/Not Resolved]
  - Injection site erythema [Not Recovered/Not Resolved]
  - Respiration abnormal [Not Recovered/Not Resolved]
